FAERS Safety Report 7435260-6 (Version None)
Quarter: 2011Q2

REPORT INFORMATION
  Report Type: 
  Country: None (occurrence: None)
  Receive Date: 20110425
  Receipt Date: 20110309
  Transmission Date: 20111010
  Serious: Yes (Other)
  Sender: FDA-Public Use
  Company Number: PHHY2011CH19954

PATIENT
  Age: 62 Year
  Sex: Female

DRUGS (10)
  1. ELTROXIN [Concomitant]
     Dosage: UNK
  2. OMEPRAZOLE [Concomitant]
     Dosage: UNK
  3. TRANXILIUM [Concomitant]
     Dosage: UNK
  4. UNIPHYL [Concomitant]
     Dosage: UNK
  5. ESIDRIX [Concomitant]
     Dosage: UNK
  6. DUSPATALIN [Concomitant]
     Dosage: UNK
  7. DEANXIT [Concomitant]
     Dosage: UNK
  8. GLEEVEC [Suspect]
     Indication: CHRONIC MYELOID LEUKAEMIA
     Dosage: 400 MG, QD
     Route: 048
     Dates: start: 20101001, end: 20110127
  9. GLEEVEC [Suspect]
     Dosage: 300 MG, BID
     Route: 048
     Dates: start: 20110128, end: 20110225
  10. DORMICUM [Concomitant]
     Dosage: UNK

REACTIONS (2)
  - LUNG INFILTRATION [None]
  - DYSPNOEA [None]
